FAERS Safety Report 13440396 (Version 3)
Quarter: 2018Q1

REPORT INFORMATION
  Report Type: Report from Study
  Country: None (occurrence: AU)
  Receive Date: 20170413
  Receipt Date: 20180222
  Transmission Date: 20180508
  Serious: Yes (Hospitalization, Other)
  Sender: FDA-Public Use
  Company Number: AU-ABBVIE-17K-008-1940457-00

PATIENT
  Sex: Female

DRUGS (2)
  1. METHOTREXATE. [Concomitant]
     Active Substance: METHOTREXATE
     Indication: PRODUCT USED FOR UNKNOWN INDICATION
  2. HUMIRA [Suspect]
     Active Substance: ADALIMUMAB
     Indication: PSORIATIC ARTHROPATHY
     Route: 058
     Dates: start: 20161114, end: 20170119

REACTIONS (9)
  - Cerebral calcification [Recovered/Resolved]
  - Brain neoplasm [Recovered/Resolved]
  - Hypertension [Not Recovered/Not Resolved]
  - Surgery [Unknown]
  - Post procedural complication [Not Recovered/Not Resolved]
  - Fatigue [Unknown]
  - Skin cancer [Unknown]
  - Asthenia [Unknown]
  - Lethargy [Not Recovered/Not Resolved]
